FAERS Safety Report 8052606-9 (Version None)
Quarter: 2012Q1

REPORT INFORMATION
  Report Type: 
  Country: None (occurrence: None)
  Receive Date: 20120117
  Receipt Date: 20120117
  Transmission Date: 20120608
  Serious: Yes (Hospitalization)
  Sender: FDA-Public Use
  Company Number: None

PATIENT
  Age: 57 Year
  Sex: Male
  Weight: 68.2 kg

DRUGS (2)
  1. FLUOROURACIL [Suspect]
     Dosage: ONCE IV
     Route: 042
     Dates: start: 20110606, end: 20110607
  2. FLUOROURACIL [Suspect]
     Dosage: ONCE IV
     Route: 042
     Dates: start: 20110606, end: 20110610

REACTIONS (3)
  - ORTHOSTATIC HYPOTENSION [None]
  - NEUTROPENIA [None]
  - FATIGUE [None]
